FAERS Safety Report 14051350 (Version 1)
Quarter: 2017Q4

REPORT INFORMATION
  Report Type: Report from Study
  Country: US (occurrence: US)
  Receive Date: 20171005
  Receipt Date: 20171005
  Transmission Date: 20180321
  Serious: Yes (Other)
  Sender: FDA-Public Use
  Company Number: US-AMGEN-USASL2016168820

PATIENT
  Age: 70 Year
  Sex: Female

DRUGS (7)
  1. GARLIC. [Concomitant]
     Active Substance: GARLIC
  2. PROLIA [Suspect]
     Active Substance: DENOSUMAB
     Indication: OSTEOPOROSIS POSTMENOPAUSAL
     Dosage: UNK
     Route: 065
     Dates: start: 20160617
  3. CALCIUM [Concomitant]
     Active Substance: CALCIUM
  4. RED YEAST RICE [Concomitant]
     Active Substance: DIETARY SUPPLEMENT
  5. EYE BRIGHT [Concomitant]
  6. VITAMIN D [Concomitant]
     Active Substance: CHOLECALCIFEROL
     Indication: BONE DISORDER
  7. FLAXSEED [Concomitant]
     Active Substance: FLAX SEED

REACTIONS (2)
  - Cataract [Unknown]
  - Pain [Unknown]

NARRATIVE: CASE EVENT DATE: 2016
